FAERS Safety Report 8976829 (Version 1)
Quarter: 2012Q4

REPORT INFORMATION
  Report Type: Report from Study
  Country: BE (occurrence: BE)
  Receive Date: 20121220
  Receipt Date: 20121220
  Transmission Date: 20130627
  Serious: Yes (Hospitalization)
  Sender: FDA-Public Use
  Company Number: BE-ROCHE-1076970

PATIENT
  Age: 50 Year
  Sex: Male
  Weight: 74.8 kg

DRUGS (9)
  1. BEVACIZUMAB [Suspect]
     Indication: METASTATIC RENAL CELL CARCINOMA
     Route: 042
     Dates: start: 20090925
  2. BEVACIZUMAB [Suspect]
     Route: 042
     Dates: start: 20100129
  3. INTERFERON ALFA-2A [Suspect]
     Indication: METASTATIC RENAL CELL CARCINOMA
     Dosage: 9 MUI
     Route: 058
     Dates: start: 20090925
  4. INTERFERON ALFA-2A [Suspect]
     Dosage: 9 MUI
     Route: 058
     Dates: start: 20100129
  5. ZOVIRAX [Concomitant]
  6. OMEPRAZOLE [Concomitant]
  7. SIPRALEXA [Concomitant]
  8. DAFALGAN [Concomitant]
  9. CORDANUM [Concomitant]

REACTIONS (1)
  - Gastritis [Recovered/Resolved]
